FAERS Safety Report 4922761-5 (Version None)
Quarter: 2006Q1

REPORT INFORMATION
  Report Type: 
  Country: None (occurrence: None)
  Receive Date: 20060221
  Receipt Date: 20060208
  Transmission Date: 20060701
  Serious: Yes (Death, Hospitalization)
  Sender: FDA-Public Use
  Company Number: 151-20785-06020231

PATIENT
  Age: 69 Year
  Sex: Male

DRUGS (9)
  1. THALIDOMIDE - PHARMION (THALIDOMIDE) (CAPSULES) [Suspect]
     Indication: RENAL AMYLOIDOSIS
     Dosage: 200 MG, DAILY, ORAL : 100 MG, DAILY, ORAL
     Route: 048
     Dates: start: 20050916, end: 20051001
  2. THALIDOMIDE - PHARMION (THALIDOMIDE) (CAPSULES) [Suspect]
     Indication: RENAL AMYLOIDOSIS
     Dosage: 200 MG, DAILY, ORAL : 100 MG, DAILY, ORAL
     Route: 048
     Dates: start: 20051001, end: 20051227
  3. NEXIUM [Concomitant]
  4. LASIX [Concomitant]
  5. LEXOTANIL (BROMAZEPAM) [Concomitant]
  6. TEMESTA (LORAZEPAM) [Concomitant]
  7. PRIMPERAN TAB [Concomitant]
  8. CODEINE [Concomitant]
  9. PAROXETINE [Concomitant]

REACTIONS (11)
  - ANURIA [None]
  - BLOOD CREATININE INCREASED [None]
  - BLOOD POTASSIUM INCREASED [None]
  - DIARRHOEA [None]
  - DISEASE PROGRESSION [None]
  - HYPOTENSION [None]
  - INFECTION [None]
  - LUNG INFECTION [None]
  - PERFORMANCE STATUS DECREASED [None]
  - PYREXIA [None]
  - VOMITING [None]
